FAERS Safety Report 23576496 (Version 2)
Quarter: 2024Q1

REPORT INFORMATION
  Report Type: Spontaneous
  Country: US (occurrence: US)
  Receive Date: 20240228
  Receipt Date: 20240308
  Transmission Date: 20240410
  Serious: Yes (Hospitalization, Other)
  Sender: FDA-Public Use
  Company Number: US-SA-SAC20240222001128

PATIENT

DRUGS (1)
  1. LARONIDASE [Suspect]
     Active Substance: LARONIDASE
     Indication: Mucopolysaccharidosis I
     Dosage: 8.7 (UNITS NOT PROVIDED), QW
     Route: 042
     Dates: start: 20230905

REACTIONS (4)
  - Gastrointestinal disorder [Not Recovered/Not Resolved]
  - Dyspepsia [Unknown]
  - Graft versus host disease [Unknown]
  - Rash [Unknown]

NARRATIVE: CASE EVENT DATE: 20240228
